FAERS Safety Report 21751631 (Version 1)
Quarter: 2022Q4

REPORT INFORMATION
  Report Type: Other
  Country: JP (occurrence: None)
  Receive Date: 20221220
  Receipt Date: 20221220
  Transmission Date: 20230113
  Serious: Yes (Other)
  Sender: FDA-Public Use
  Company Number: JP-ROCHE-3246009

PATIENT
  Age: 2 Year
  Sex: Female

DRUGS (4)
  1. OSELTAMIVIR [Suspect]
     Active Substance: OSELTAMIVIR
     Indication: Influenza
     Route: 065
  2. PERAMIVIR [Concomitant]
     Active Substance: PERAMIVIR
     Indication: Influenza
  3. ZANAMIVIR [Concomitant]
     Active Substance: ZANAMIVIR
     Indication: Influenza
  4. LANINAMIVIR [Concomitant]
     Active Substance: LANINAMIVIR

REACTIONS (1)
  - Pathogen resistance [Unknown]
